FAERS Safety Report 5799451-2 (Version None)
Quarter: 2008Q3

REPORT INFORMATION
  Report Type: 
  Country: None (occurrence: None)
  Receive Date: 20080701
  Receipt Date: 20080701
  Transmission Date: 20090109
  Serious: Yes (Hospitalization)
  Sender: FDA-Public Use
  Company Number: None

PATIENT
  Age: 66 Year
  Sex: Male

DRUGS (1)
  1. CEFUROXIME [Suspect]
     Indication: SINUSITIS
     Dosage: 500 MG BID PO
     Route: 048
     Dates: start: 20080504, end: 20080511

REACTIONS (2)
  - BACTERIA STOOL IDENTIFIED [None]
  - DIARRHOEA [None]
